FAERS Safety Report 17516116 (Version 3)
Quarter: 2020Q2

REPORT INFORMATION
  Report Type: Report from Study
  Country: BE (occurrence: BE)
  Receive Date: 20200309
  Receipt Date: 20200626
  Transmission Date: 20200713
  Serious: Yes (Hospitalization, Other)
  Sender: FDA-Public Use
  Company Number: NVSC2019BE013741

PATIENT
  Age: 45 Year
  Sex: Female

DRUGS (5)
  1. SANDOSTATIN LAR DEPOT [Suspect]
     Active Substance: OCTREOTIDE ACETATE
     Dosage: 20 MG
     Route: 030
     Dates: start: 20181005
  2. SANDOSTATIN LAR DEPOT [Suspect]
     Active Substance: OCTREOTIDE ACETATE
     Dosage: UNK
     Route: 065
     Dates: start: 20200425
  3. SANDOSTATIN LAR DEPOT [Suspect]
     Active Substance: OCTREOTIDE ACETATE
     Dosage: 20 MG
     Route: 030
     Dates: start: 20190913
  4. SANDOSTATIN LAR DEPOT [Suspect]
     Active Substance: OCTREOTIDE ACETATE
     Indication: DUMPING SYNDROME
     Dosage: 20 MG
     Route: 030
     Dates: start: 20171026
  5. GLUCOBAY [Concomitant]
     Active Substance: ACARBOSE
     Indication: PRODUCT USED FOR UNKNOWN INDICATION
     Dosage: UNK
     Route: 065

REACTIONS (15)
  - Haematochezia [Unknown]
  - Constipation [Unknown]
  - Coronavirus infection [Recovering/Resolving]
  - Hernia [Unknown]
  - Abdominal pain [Unknown]
  - Procedural pain [Unknown]
  - Influenza like illness [Recovering/Resolving]
  - Headache [Recovering/Resolving]
  - Fatigue [Unknown]
  - Abdominal mass [Unknown]
  - Ageusia [Recovering/Resolving]
  - Anosmia [Recovering/Resolving]
  - Dyspnoea [Recovering/Resolving]
  - Injection site pain [Recovered/Resolved]
  - Product use in unapproved indication [Unknown]

NARRATIVE: CASE EVENT DATE: 20171026
